FAERS Safety Report 25510703 (Version 1)
Quarter: 2025Q3

REPORT INFORMATION
  Report Type: Spontaneous
  Country: US (occurrence: None)
  Receive Date: 20250703
  Receipt Date: 20250703
  Transmission Date: 20251021
  Serious: Yes (Life-Threatening, Hospitalization, Disabling, Other)
  Sender: FDA-CTU
  Company Number: None

PATIENT
  Age: 54 Year
  Sex: Male
  Weight: 106.65 kg

DRUGS (5)
  1. CABENUVA [Suspect]
     Active Substance: CABOTEGRAVIR\RILPIVIRINE
     Indication: HIV infection
     Route: 030
     Dates: start: 20241010, end: 20250113
  2. CABOTEGRAVIR\RILPIVIRINE [Suspect]
     Active Substance: CABOTEGRAVIR\RILPIVIRINE
  3. PREDNISONE [Concomitant]
     Active Substance: PREDNISONE
  4. MAGNESIUM [Concomitant]
     Active Substance: MAGNESIUM
  5. ASCORBIC ACID\TOCOPHEROL [Concomitant]
     Active Substance: ASCORBIC ACID\TOCOPHEROL

REACTIONS (10)
  - Gait disturbance [None]
  - Inappropriate schedule of product administration [None]
  - Blood creatine phosphokinase increased [None]
  - Troponin increased [None]
  - Aspartate aminotransferase increased [None]
  - Polymyositis [None]
  - Asthenia [None]
  - Musculoskeletal disorder [None]
  - Anal incontinence [None]
  - Unevaluable event [None]

NARRATIVE: CASE EVENT DATE: 20241010
